FAERS Safety Report 6507146-2 (Version None)
Quarter: 2009Q4

REPORT INFORMATION
  Report Type: 
  Country: None (occurrence: None)
  Receive Date: 20091221
  Receipt Date: 20091210
  Transmission Date: 20100525
  Serious: Yes (Hospitalization)
  Sender: FDA-Public Use
  Company Number: PHHY2009BR53658

PATIENT
  Sex: Female
  Weight: 60 kg

DRUGS (8)
  1. EXELON [Suspect]
     Indication: DEMENTIA ALZHEIMER'S TYPE
     Dosage: 9MG/5CM2
     Route: 062
     Dates: start: 20090901
  2. EXELON [Suspect]
     Dosage: 1 PATCH (18MG/10CM2) PER DAY
     Route: 062
  3. PAMELOR [Concomitant]
     Indication: DEPRESSION
     Dosage: 1 TABLET DAILY
     Route: 048
     Dates: start: 20090801
  4. VITAMIN B COMPLEX CAP [Concomitant]
     Indication: ANAEMIA
     Dosage: 1 TABLET DAILY
     Route: 048
     Dates: start: 20091127
  5. ATENOLOL [Concomitant]
     Indication: BLOOD PRESSURE ABNORMAL
     Dosage: 1 TABLET DAILY
     Route: 048
     Dates: start: 20091127
  6. CIPROFLOXACIN [Concomitant]
     Dosage: 0.5 DF, BID
     Route: 048
     Dates: start: 20091127
  7. APRESOLINE [Concomitant]
     Indication: BLOOD PRESSURE ABNORMAL
     Dosage: 1 DF, TID
     Route: 048
     Dates: start: 20091127
  8. OMEPRAZOLE [Concomitant]
     Dosage: 1 TABLET DAILY
     Route: 048
     Dates: start: 20091127

REACTIONS (4)
  - APPLICATION SITE ERYTHEMA [None]
  - APPLICATION SITE PRURITUS [None]
  - RENAL DISORDER [None]
  - WEIGHT DECREASED [None]
